FAERS Safety Report 6720130-9 (Version None)
Quarter: 2010Q2

REPORT INFORMATION
  Report Type: 
  Country: None (occurrence: None)
  Receive Date: 20100511
  Receipt Date: 20100504
  Transmission Date: 20101027
  Serious: Yes (Other)
  Sender: FDA-Public Use
  Company Number: US-SANOFI-AVENTIS-2010SA012116

PATIENT
  Age: 77 Year
  Sex: Female
  Weight: 98 kg

DRUGS (21)
  1. LANTUS [Suspect]
     Dosage: DOSE:18 UNIT(S)
     Route: 058
     Dates: start: 20050701
  2. SOLOSTAR [Suspect]
     Dates: start: 20100201
  3. NOVOLIN R [Suspect]
     Dosage: CONSUMER STATES SHE WAS GIVEN NOVOLIN R INSTEAD OF NOVOLOG IN THE NH. IN NH FOR 3 WEEKS.
     Route: 065
     Dates: start: 20090501
  4. NOVOLOG [Concomitant]
     Dosage: STARTED  NOVOLOG AFTER D/C FROM NH; USES IT ON SLIDING SCALE.
     Dates: start: 20090101
  5. ACTONEL [Concomitant]
     Dosage: EVERY MONDAY WITH 8 OZ OD WATER 30 MINUTES BEFORE EATING
  6. ATENOLOL [Concomitant]
     Indication: HYPERTENSION
  7. ATENOLOL [Concomitant]
     Indication: TREMOR
  8. ATENOLOL [Concomitant]
     Indication: MIGRAINE
  9. DILTIAZEM HCL [Concomitant]
     Indication: HYPERTENSION
     Dosage: ONCE DAILY AT 8AM
  10. ACTOS [Concomitant]
     Dosage: AT 8AM
  11. MIRALAX [Concomitant]
     Indication: BOWEL MOVEMENT IRREGULARITY
     Dosage: AT 8 AM
  12. CHONDROITIN SULFATE/GLUCOSAMINE HYDROCHLORIDE [Concomitant]
     Dosage: 2 TABLETS DAILY AT 8AM AND 6PM
  13. ASPIRIN [Concomitant]
     Dosage: AT 8AM
  14. MULTI-VITAMINS [Concomitant]
     Dosage: ONE AT 8AM AND ONE AT 6PM
  15. MULTI-VITAMINS [Concomitant]
  16. CALCIUM [Concomitant]
     Dosage: AT 8AM AND AT 6PM
  17. HYDROCHLOROTHIAZIDE [Concomitant]
  18. COUMADIN [Concomitant]
  19. COLACE [Concomitant]
  20. BENICAR [Concomitant]
     Indication: HYPERTENSION
     Dosage: AT 9PM
  21. SIMVASTATIN [Concomitant]
     Dosage: AT 9PM

REACTIONS (8)
  - CEREBROVASCULAR ACCIDENT [None]
  - CONTUSION [None]
  - FEELING HOT [None]
  - HYPERHIDROSIS [None]
  - HYPOGLYCAEMIA [None]
  - MEDICATION ERROR [None]
  - MEMORY IMPAIRMENT [None]
  - SKIN ODOUR ABNORMAL [None]
